FAERS Safety Report 8392272-6 (Version None)
Quarter: 2012Q2

REPORT INFORMATION
  Report Type: 
  Country: None (occurrence: None)
  Receive Date: 20120529
  Receipt Date: 20120521
  Transmission Date: 20120825
  Serious: Yes (Other)
  Sender: FDA-Public Use
  Company Number: US-JNJFOC-20120516714

PATIENT
  Sex: Female

DRUGS (2)
  1. SIMPONI [Suspect]
     Indication: NEUROPATHY PERIPHERAL
     Route: 058
     Dates: start: 20111201, end: 20120201
  2. SIMPONI [Suspect]
     Indication: PSORIATIC ARTHROPATHY
     Route: 058
     Dates: start: 20111201, end: 20120201

REACTIONS (3)
  - TOE AMPUTATION [None]
  - OFF LABEL USE [None]
  - OPEN WOUND [None]
